FAERS Safety Report 8438735 (Version 6)
Quarter: 2015Q1

REPORT INFORMATION
  Report Type: Report from Study
  Country: CA (occurrence: CA)
  Receive Date: 20120302
  Receipt Date: 20150128
  Transmission Date: 20150721
  Serious: Yes (Life-Threatening, Hospitalization)
  Sender: FDA-Public Use
  Company Number: CA-ROCHE-1044623

PATIENT
  Age: 69 Year
  Sex: Male
  Weight: 62.9 kg

DRUGS (11)
  1. RANITIDINE [Concomitant]
     Active Substance: RANITIDINE\RANITIDINE HYDROCHLORIDE
     Route: 065
     Dates: start: 20120322
  2. METOCLOPRAMIDE. [Concomitant]
     Active Substance: METOCLOPRAMIDE
     Route: 065
     Dates: start: 20120316
  3. LOMOTIL (ATROPINE/DIPHENOXYLATE) [Concomitant]
     Route: 065
     Dates: start: 20120322
  4. SENNA [Concomitant]
     Active Substance: SENNA LEAF\SENNOSIDES\SENNOSIDES A AND B
     Dosage: SENAKOTE
     Route: 065
     Dates: start: 20120201
  5. LOPERAMIDE [Concomitant]
     Active Substance: LOPERAMIDE
     Route: 065
     Dates: start: 20120302
  6. VEMURAFENIB [Suspect]
     Active Substance: VEMURAFENIB
     Indication: MALIGNANT MELANOMA
     Dosage: LAST DOSE PRIOR TO SAE: 25 FEB 2012; TEMPORARILY INTERRUPTED
     Route: 048
     Dates: start: 20120222, end: 20120226
  7. POTASSIUM CHLORIDE. [Concomitant]
     Active Substance: POTASSIUM CHLORIDE
     Route: 065
     Dates: start: 20120322
  8. ENOPARIN [Concomitant]
     Route: 065
     Dates: start: 20120222, end: 20120305
  9. VEMURAFENIB [Suspect]
     Active Substance: VEMURAFENIB
     Route: 048
     Dates: start: 20120307
  10. SODIUM CHLORIDE. [Concomitant]
     Active Substance: SODIUM CHLORIDE
     Route: 065
     Dates: start: 20120322
  11. LACTULOSE. [Concomitant]
     Active Substance: LACTULOSE
     Route: 065
     Dates: start: 20120201

REACTIONS (1)
  - Jejunal perforation [Recovered/Resolved with Sequelae]

NARRATIVE: CASE EVENT DATE: 20120226
